FAERS Safety Report 22264546 (Version 1)
Quarter: 2023Q2

REPORT INFORMATION
  Report Type: Spontaneous
  Country: US (occurrence: None)
  Receive Date: 20230426
  Receipt Date: 20230426
  Transmission Date: 20230721
  Serious: Yes (Hospitalization)
  Sender: FDA-Public Use
  Company Number: None

PATIENT
  Age: 80 Year
  Sex: Female

DRUGS (11)
  1. EVEROLIMUS [Suspect]
     Active Substance: EVEROLIMUS
     Indication: Renal cancer
     Dosage: FREQUENCY : DAILY;?
     Route: 048
  2. AMLODIPINE BESYLATE [Concomitant]
     Active Substance: AMLODIPINE BESYLATE
  3. DEXAMETHASONE [Concomitant]
     Active Substance: DEXAMETHASONE
  4. ENSURE ORAL LIQUID [Concomitant]
  5. FOLIC ACID [Concomitant]
     Active Substance: FOLIC ACID
  6. LIDOCAINE-PRILOCAINE EXTERNAL CREAM [Concomitant]
  7. LOSARTAN [Concomitant]
     Active Substance: LOSARTAN
  8. POTASSIUM CHLORIDE [Concomitant]
     Active Substance: POTASSIUM CHLORIDE
  9. PREDNISONE [Concomitant]
     Active Substance: PREDNISONE
  10. PROCHLORPERAZINE [Concomitant]
     Active Substance: PROCHLORPERAZINE
  11. VITAMIN B12 [Concomitant]
     Active Substance: CYANOCOBALAMIN

REACTIONS (2)
  - Pulmonary oedema [None]
  - Nonspecific reaction [None]
